FAERS Safety Report 21705548 (Version 1)
Quarter: 2022Q4

REPORT INFORMATION
  Report Type: Spontaneous
  Country: GB (occurrence: GB)
  Receive Date: 20221209
  Receipt Date: 20221209
  Transmission Date: 20230112
  Serious: Yes (Other)
  Sender: FDA-Public Use
  Company Number: None

PATIENT
  Age: 22 Year
  Sex: Female

DRUGS (4)
  1. TERBINAFINE [Suspect]
     Active Substance: TERBINAFINE
     Indication: Ill-defined disorder
     Dosage: UNK
     Route: 065
     Dates: start: 20221125
  2. DUAC [Concomitant]
     Active Substance: BENZOYL PEROXIDE\CLINDAMYCIN PHOSPHATE
     Indication: Ill-defined disorder
     Dosage: UNK, APPLY AT NIGHT- IF NO IMPROVEMENT SEE GP
     Route: 065
     Dates: start: 20211224
  3. PREDNISOLONE [Concomitant]
     Active Substance: PREDNISOLONE
     Indication: Ill-defined disorder
     Dosage: 4 DOSAGE FORM, QD, (TAKE 4 TABLETS ONCE DAILY FOR 7 DAYS)
     Route: 065
     Dates: start: 20221125, end: 20221130
  4. TERBINAFINE [Concomitant]
     Active Substance: TERBINAFINE
     Indication: Ill-defined disorder
     Dosage: UNK UNK, QD, (TAKE ONE DAILY)
     Route: 065
     Dates: start: 20221114, end: 20221128

REACTIONS (1)
  - Swelling face [Recovering/Resolving]

NARRATIVE: CASE EVENT DATE: 20221125
